FAERS Safety Report 9217377 (Version 1)
Quarter: 2013Q2

REPORT INFORMATION
  Report Type: Spontaneous
  Country: DK (occurrence: GB)
  Receive Date: 20130408
  Receipt Date: 20130408
  Transmission Date: 20140414
  Serious: Yes (Disabling)
  Sender: FDA-Public Use
  Company Number: GB-FRI-1000044068

PATIENT
  Age: 39 Year
  Sex: Female
  Weight: 70 kg

DRUGS (2)
  1. CITALOPRAM [Suspect]
     Indication: ANXIETY
     Dosage: 20 MG
     Route: 048
     Dates: start: 20130131
  2. CITALOPRAM [Suspect]
     Indication: DEPRESSION

REACTIONS (1)
  - Oropharyngeal pain [Recovered/Resolved]
